FAERS Safety Report 10016760 (Version 1)
Quarter: 2014Q1

REPORT INFORMATION
  Report Type: Report from Study
  Country: BR (occurrence: BR)
  Receive Date: 20140318
  Receipt Date: 20140318
  Transmission Date: 20141002
  Serious: Yes (Other)
  Sender: FDA-Public Use
  Company Number: PHHY2014BR027888

PATIENT
  Sex: Male
  Weight: 88 kg

DRUGS (10)
  1. DIOVAN HCT [Suspect]
     Indication: HYPERTENSION
     Dosage: 1 DF, (160 MG VALS /12.5 MG HCTZ) IN THE MORNING
     Route: 048
  2. DIOVAN HCT [Suspect]
     Dosage: 1 DF, (320 MG VALS AND 12.5 MG HCTZ) IN THE MORNING
     Route: 048
  3. DIOVAN HCT [Suspect]
     Dosage: 1 DF, (320 MG VALS AND 12.5 MG HCTZ) IN THE MORING
     Route: 048
     Dates: start: 20140303
  4. ROXFLAN [Suspect]
     Indication: HYPERTENSION
     Dosage: 2 DF, (01 DF IN MORNING AND 01 DF IN AFTERNOON) (5 MG)
     Route: 048
  5. CARVEDILOL [Concomitant]
     Indication: HYPERTENSION
     Dosage: UNK UKN, UNK
  6. CARVEDILOL [Concomitant]
     Indication: CARDIAC FAILURE
  7. MAREVAN [Concomitant]
     Indication: COAGULOPATHY
     Dosage: UNK UKN, UNK
  8. PRADAXA [Concomitant]
     Indication: COAGULOPATHY
  9. BROMAZEPAM [Concomitant]
     Indication: RELAXATION THERAPY
     Dosage: UNK UKN, UNK
     Dates: start: 1996
  10. BROMAZEPAM [Concomitant]
     Indication: INSOMNIA

REACTIONS (12)
  - Arrhythmia [Recovering/Resolving]
  - Limb injury [Recovered/Resolved]
  - Hypoaesthesia oral [Recovering/Resolving]
  - Nervousness [Recovered/Resolved]
  - Head discomfort [Recovered/Resolved]
  - Blood viscosity increased [Recovering/Resolving]
  - Breath odour [Recovered/Resolved]
  - Erectile dysfunction [Recovering/Resolving]
  - Blood uric acid increased [Recovering/Resolving]
  - Loss of libido [Recovering/Resolving]
  - Oedema peripheral [Recovered/Resolved]
  - Headache [Recovered/Resolved]
